FAERS Safety Report 7388480-3 (Version None)
Quarter: 2011Q1

REPORT INFORMATION
  Report Type: 
  Country: None (occurrence: None)
  Receive Date: 20110329
  Receipt Date: 20110329
  Transmission Date: 20110831
  Serious: Yes (Other)
  Sender: FDA-Public Use
  Company Number: None

PATIENT
  Age: 26 Year
  Sex: Female
  Weight: 51.2565 kg

DRUGS (1)
  1. SEROQUEL [Suspect]
     Indication: INSOMNIA
     Dosage: 100 MG NIGHTLY BY MOUTH
     Route: 048
     Dates: start: 20090401, end: 20110101

REACTIONS (3)
  - MUSCULAR WEAKNESS [None]
  - PERONEAL NERVE PALSY [None]
  - PAIN IN EXTREMITY [None]
